FAERS Safety Report 6983846-5 (Version None)
Quarter: 2010Q3

REPORT INFORMATION
  Report Type: 
  Country: None (occurrence: None)
  Receive Date: 20100914
  Receipt Date: 20090408
  Transmission Date: 20110219
  Serious: No
  Sender: FDA-Public Use
  Company Number: US-WYE-H08649309

PATIENT
  Age: 52 Year
  Sex: Female
  Weight: 60.38 kg

DRUGS (5)
  1. ADVIL LIQUI-GELS [Suspect]
     Indication: ARTHRALGIA
     Dosage: 2 LIQUI-GELS AS NEEDED
     Route: 048
  2. CALCIUM [Concomitant]
  3. VITAMIN D [Concomitant]
  4. METHOTREXATE [Concomitant]
  5. PLAQUENIL [Concomitant]

REACTIONS (4)
  - BURNING SENSATION [None]
  - GLOSSODYNIA [None]
  - HYPOAESTHESIA ORAL [None]
  - PRODUCT QUALITY ISSUE [None]
